FAERS Safety Report 22925391 (Version 2)
Quarter: 2023Q4

REPORT INFORMATION
  Report Type: Spontaneous
  Country: US (occurrence: None)
  Receive Date: 20230908
  Receipt Date: 20231031
  Transmission Date: 20240109
  Serious: Yes (Other)
  Sender: FDA-Public Use
  Company Number: 2023A205000

PATIENT
  Sex: Male

DRUGS (2)
  1. EVUSHELD [Suspect]
     Active Substance: CILGAVIMAB\TIXAGEVIMAB
     Dosage: DOSE UNKNOWN ? 1ST DOSE
     Route: 030
     Dates: start: 20220804
  2. RITUXAN [Suspect]
     Active Substance: RITUXIMAB
     Dosage: 24 RITUXAN INFUSIONS

REACTIONS (5)
  - Granulomatosis with polyangiitis [Unknown]
  - Fatigue [Unknown]
  - Malaise [Unknown]
  - COVID-19 [Unknown]
  - SARS-CoV-2 antibody test positive [Unknown]
